FAERS Safety Report 25275720 (Version 1)
Quarter: 2025Q2

REPORT INFORMATION
  Report Type: Report from Study
  Country: US (occurrence: US)
  Receive Date: 20250507
  Receipt Date: 20250507
  Transmission Date: 20250717
  Serious: Yes (Other)
  Sender: ABBVIE
  Company Number: US-ABBVIE-6267712

PATIENT
  Sex: Female

DRUGS (5)
  1. RINVOQ [Suspect]
     Active Substance: UPADACITINIB
     Indication: Psoriatic arthropathy
     Route: 048
     Dates: start: 202412
  2. RINVOQ [Suspect]
     Active Substance: UPADACITINIB
     Indication: Psoriatic arthropathy
     Route: 048
     Dates: start: 202412
  3. NITROGLYCERIN [Concomitant]
     Active Substance: NITROGLYCERIN
     Indication: Product used for unknown indication
  4. XANAX [Concomitant]
     Active Substance: ALPRAZOLAM
     Indication: Product used for unknown indication
  5. IBUPROFEN [Concomitant]
     Active Substance: IBUPROFEN
     Indication: Product used for unknown indication

REACTIONS (12)
  - Spinal column injury [Unknown]
  - Bronchitis [Unknown]
  - Asthma [Unknown]
  - Antineutrophil cytoplasmic antibody positive [Unknown]
  - Pulmonary mass [Unknown]
  - Fall [Unknown]
  - Cardiac disorder [Unknown]
  - Heart rate abnormal [Unknown]
  - Dizziness [Unknown]
  - Nausea [Unknown]
  - Unevaluable event [Unknown]
  - Pain [Recovering/Resolving]
